FAERS Safety Report 6985919-X (Version None)
Quarter: 2010Q3

REPORT INFORMATION
  Report Type: 
  Country: None (occurrence: None)
  Receive Date: 20100827
  Receipt Date: 20100610
  Transmission Date: 20110219
  Serious: No
  Sender: FDA-Public Use
  Company Number: 013715

PATIENT
  Sex: Male
  Weight: 61 kg

DRUGS (6)
  1. LACOSAMIDE [Suspect]
     Indication: CONVULSION
     Dosage: (50 MG BID ORAL)
     Route: 048
     Dates: start: 20100607, end: 20100609
  2. KEPPRA [Concomitant]
  3. TRILEPTAL [Concomitant]
  4. TRANXENE [Concomitant]
  5. KALETRA [Concomitant]
  6. ZIAGEN [Concomitant]

REACTIONS (4)
  - BACK PAIN [None]
  - FEELING ABNORMAL [None]
  - MUSCLE SPASMS [None]
  - PAIN IN EXTREMITY [None]
